FAERS Safety Report 25626484 (Version 2)
Quarter: 2025Q3

REPORT INFORMATION
  Report Type: Spontaneous
  Country: CA (occurrence: CA)
  Receive Date: 20250731
  Receipt Date: 20250903
  Transmission Date: 20251021
  Serious: Yes (Other)
  Sender: ROCHE
  Company Number: CA-002147023-NVSC2025CA117915

PATIENT
  Sex: Male

DRUGS (9)
  1. OMALIZUMAB [Suspect]
     Active Substance: OMALIZUMAB
     Indication: Chronic spontaneous urticaria
     Dosage: 300 MG, Q2W
     Route: 065
     Dates: start: 20210401
  2. RUPATADINE [Suspect]
     Active Substance: RUPATADINE
     Indication: Chronic spontaneous urticaria
     Dosage: 20 MG, BID
     Route: 065
     Dates: start: 20241101
  3. DIPHENHYDRAMINE [Suspect]
     Active Substance: DIPHENHYDRAMINE
     Indication: Chronic spontaneous urticaria
     Route: 065
     Dates: start: 20240501
  4. EPINEPHRINE [Suspect]
     Active Substance: EPINEPHRINE
     Indication: Chronic spontaneous urticaria
     Route: 065
  5. BILASTINE [Suspect]
     Active Substance: BILASTINE
     Indication: Chronic spontaneous urticaria
     Dosage: 20 MG, BID (PRN)
     Route: 065
     Dates: start: 20210701
  6. CYCLOSPORINE [Suspect]
     Active Substance: CYCLOSPORINE
     Indication: Chronic spontaneous urticaria
     Dosage: 150 MG, BID
     Route: 065
     Dates: start: 20240501, end: 20250415
  7. KETOTIFEN [Suspect]
     Active Substance: KETOTIFEN
     Indication: Chronic spontaneous urticaria
     Route: 065
     Dates: start: 20220504, end: 20221204
  8. HYDROXYZINE [Suspect]
     Active Substance: HYDROXYZINE HYDROCHLORIDE
     Indication: Chronic spontaneous urticaria
     Dosage: 25 MG, TID (1-2 TABS)
     Route: 065
     Dates: start: 20220701, end: 20230201
  9. PREDNISONE [Suspect]
     Active Substance: PREDNISONE
     Indication: Chronic spontaneous urticaria
     Route: 065
     Dates: start: 20210304, end: 20240304

REACTIONS (2)
  - Chronic spontaneous urticaria [Unknown]
  - Drug ineffective [Unknown]
